FAERS Safety Report 4714231-4 (Version None)
Quarter: 2005Q3

REPORT INFORMATION
  Report Type: 
  Country: None (occurrence: None)
  Receive Date: 20050713
  Receipt Date: 20050713
  Transmission Date: 20060218
  Serious: Yes (Death)
  Sender: FDA-Public Use
  Company Number: None

PATIENT
  Age: 39 Year
  Sex: Female
  Weight: 122.4712 kg

DRUGS (3)
  1. ZOFRAN [Suspect]
     Indication: NAUSEA
  2. ZOFRAN [Suspect]
     Indication: PREGNANCY
  3. REGLAN [Suspect]

REACTIONS (3)
  - DRUG EXPOSURE DURING PREGNANCY [None]
  - FOETAL DISTRESS SYNDROME [None]
  - INTRA-UTERINE DEATH [None]
